FAERS Safety Report 11505215 (Version 1)
Quarter: 2015Q3

REPORT INFORMATION
  Report Type: Spontaneous
  Country: US (occurrence: US)
  Receive Date: 20150915
  Receipt Date: 20150915
  Transmission Date: 20151125
  Serious: No
  Sender: FDA-Public Use
  Company Number: US-ROCHE-761646

PATIENT
  Sex: Male

DRUGS (4)
  1. COPEGUS [Suspect]
     Active Substance: RIBAVIRIN
     Indication: HEPATITIS C
     Route: 048
     Dates: start: 20100829, end: 20110206
  2. PEGASYS [Suspect]
     Active Substance: PEGINTERFERON ALFA-2A
     Indication: HEPATITIS C
     Dosage: DOSE : 180 MCG, FORM : PRE-FILLED SYRINGE
     Route: 058
  3. PEGASYS [Suspect]
     Active Substance: PEGINTERFERON ALFA-2A
     Dosage: DOSE 90 MCG , REDUCED DOSE
     Route: 058
  4. PEGASYS [Suspect]
     Active Substance: PEGINTERFERON ALFA-2A
     Dosage: DOSE 135 MCG, DOSE REDUCED
     Route: 058

REACTIONS (1)
  - White blood cell count decreased [Not Recovered/Not Resolved]
